FAERS Safety Report 24171493 (Version 2)
Quarter: 2024Q4

REPORT INFORMATION
  Report Type: Spontaneous
  Country: US (occurrence: US)
  Receive Date: 20240805
  Receipt Date: 20241022
  Transmission Date: 20250115
  Serious: No
  Sender: SANOFI AVENTIS
  Company Number: US-SA-SAC20240730000892

PATIENT
  Age: 49 Year
  Sex: Female

DRUGS (1)
  1. DUPIXENT [Suspect]
     Active Substance: DUPILUMAB
     Indication: Neurodermatitis
     Dosage: 300 MG, QOW
     Route: 058

REACTIONS (6)
  - Asthma [Unknown]
  - Cough [Unknown]
  - Pruritus [Unknown]
  - Injection site pain [Recovered/Resolved]
  - Therapeutic response unexpected [Unknown]
  - Therapeutic response decreased [Unknown]

NARRATIVE: CASE EVENT DATE: 20240901
